FAERS Safety Report 9536313 (Version 1)
Quarter: 2013Q2

REPORT INFORMATION
  Report Type: Spontaneous
  Country: US (occurrence: None)
  Receive Date: 20130507
  Receipt Date: 20130507
  Transmission Date: 20140414
  Serious: Yes (Other)
  Sender: FDA-Public Use
  Company Number: PHEH2013US001009

PATIENT
  Age: 46 Year
  Sex: Male
  Weight: 114.3 kg

DRUGS (1)
  1. AFINITOR (RAD) UNKNOWN [Suspect]
     Route: 048

REACTIONS (5)
  - Rash [None]
  - Influenza like illness [None]
  - Gastrooesophageal reflux disease [None]
  - Mucosal inflammation [None]
  - Quality of life decreased [None]
